FAERS Safety Report 7627661-8 (Version None)
Quarter: 2011Q3

REPORT INFORMATION
  Report Type: 
  Country: None (occurrence: None)
  Receive Date: 20110721
  Receipt Date: 20110712
  Transmission Date: 20111222
  Serious: Yes (Hospitalization)
  Sender: FDA-Public Use
  Company Number: US-ACTELION-A-US2011-51247

PATIENT

DRUGS (12)
  1. REVATIO [Concomitant]
  2. MARIJUANA [Suspect]
  3. RITALIN [Concomitant]
  4. COLCHICINE [Concomitant]
  5. LASIX [Concomitant]
  6. EPOPROSTENOL SODIUM [Suspect]
     Indication: PULMONARY ARTERIAL HYPERTENSION
     Dosage: 30 NG/KG, PER MIN
     Route: 042
     Dates: start: 20101226
  7. MS CONTIN [Suspect]
  8. FENTANYL [Suspect]
  9. PAXIL [Concomitant]
  10. CELEBREX [Concomitant]
  11. LETAIRIS [Concomitant]
  12. COUMADIN [Concomitant]

REACTIONS (3)
  - FATIGUE [None]
  - DYSPNOEA [None]
  - DRUG INTERACTION [None]
